FAERS Safety Report 12666376 (Version 2)
Quarter: 2016Q3

REPORT INFORMATION
  Report Type: Spontaneous
  Country: FR (occurrence: FR)
  Receive Date: 20160818
  Receipt Date: 20160829
  Transmission Date: 20161109
  Serious: Yes (Life-Threatening, Hospitalization)
  Sender: FDA-Public Use
  Company Number: FR-ASTRAZENECA-2016SE87410

PATIENT
  Age: 21666 Day
  Sex: Female

DRUGS (11)
  1. KOMBOGLYZE [Suspect]
     Active Substance: METFORMIN HYDROCHLORIDE\SAXAGLIPTIN
     Indication: TYPE 2 DIABETES MELLITUS
     Route: 048
     Dates: end: 20160723
  2. METFORMINE [Suspect]
     Active Substance: METFORMIN HYDROCHLORIDE
     Indication: TYPE 2 DIABETES MELLITUS
     Dosage: 1 G, EVERY DAY, NON AZ PRODUCT.
     Route: 048
     Dates: start: 2015, end: 20160329
  3. INEGY [Concomitant]
     Active Substance: EZETIMIBE\SIMVASTATIN
  4. RASILEZ [Concomitant]
     Active Substance: ALISKIREN
  5. METFORMINE [Suspect]
     Active Substance: METFORMIN HYDROCHLORIDE
     Indication: TYPE 2 DIABETES MELLITUS
     Dosage: 1 G,THREE TIMES A DAY, NON AZ PRODUCT.
     Route: 048
     Dates: start: 20160329, end: 20160723
  6. ADENURIC [Concomitant]
     Active Substance: FEBUXOSTAT
  7. DEROXAT [Concomitant]
     Active Substance: PAROXETINE HYDROCHLORIDE
  8. TERCIAN [Concomitant]
     Active Substance: CYAMEMAZINE
  9. PLAVIX [Concomitant]
     Active Substance: CLOPIDOGREL BISULFATE
  10. XANAX [Concomitant]
     Active Substance: ALPRAZOLAM
  11. KARDEGIC [Concomitant]
     Active Substance: ASPIRIN LYSINE

REACTIONS (5)
  - Lactic acidosis [Recovered/Resolved with Sequelae]
  - Acute respiratory distress syndrome [Unknown]
  - Renal failure [Unknown]
  - Drug prescribing error [Recovered/Resolved]
  - Lung disorder [Unknown]

NARRATIVE: CASE EVENT DATE: 20160723
